FAERS Safety Report 20900576 (Version 1)
Quarter: 2022Q2

REPORT INFORMATION
  Report Type: Other
  Country: IN (occurrence: None)
  Receive Date: 20220601
  Receipt Date: 20220601
  Transmission Date: 20220721
  Serious: Yes (Death)
  Sender: FDA-Public Use
  Company Number: IN-ROCHE-3105338

PATIENT
  Age: 67 Year
  Sex: Male

DRUGS (1)
  1. CELLCEPT [Suspect]
     Active Substance: MYCOPHENOLATE MOFETIL
     Indication: Renal transplant
     Dates: start: 20220308, end: 20220509

REACTIONS (2)
  - Ulcer [Unknown]
  - Infection [Fatal]

NARRATIVE: CASE EVENT DATE: 20220509
